FAERS Safety Report 14682541 (Version 1)
Quarter: 2018Q1

REPORT INFORMATION
  Report Type: Spontaneous
  Country: DE (occurrence: DE)
  Receive Date: 20180327
  Receipt Date: 20180327
  Transmission Date: 20180509
  Serious: Yes (Life-Threatening, Hospitalization)
  Sender: FDA-Public Use
  Company Number: DE-AUROBINDO-AUR-APL-2018-016840

PATIENT
  Age: 75 Year
  Sex: Male

DRUGS (9)
  1. ESOMEPRAZOLE [Suspect]
     Active Substance: ESOMEPRAZOLE
     Indication: PROPHYLAXIS AGAINST GASTROINTESTINAL ULCER
     Dosage: 40 MILLIGRAM
     Route: 065
  2. SUFENTANIL [Concomitant]
     Active Substance: SUFENTANIL
  3. PROPOFOL. [Concomitant]
     Active Substance: PROPOFOL
  4. MEROPENEM. [Concomitant]
     Active Substance: MEROPENEM
  5. HEPARIN [Concomitant]
     Active Substance: HEPARIN SODIUM
  6. INSULIN [Concomitant]
     Active Substance: INSULIN NOS
  7. FUROSEMIDE. [Concomitant]
     Active Substance: FUROSEMIDE
  8. AMIODARONE [Concomitant]
     Active Substance: AMIODARONE
  9. LINEZOLID. [Concomitant]
     Active Substance: LINEZOLID

REACTIONS (2)
  - Rhabdomyolysis [Recovering/Resolving]
  - Pyrexia [Recovering/Resolving]
